FAERS Safety Report 8071497-3 (Version None)
Quarter: 2012Q1

REPORT INFORMATION
  Report Type: 
  Country: None (occurrence: None)
  Receive Date: 20120125
  Receipt Date: 20120116
  Transmission Date: 20120608
  Serious: Yes (Other)
  Sender: FDA-Public Use
  Company Number: US-ROCHE-1033062

PATIENT
  Sex: Male

DRUGS (1)
  1. OMALIZUMAB [Suspect]
     Indication: ASTHMA
     Route: 058
     Dates: start: 20110321

REACTIONS (5)
  - ATRIAL FIBRILLATION [None]
  - HYPERTENSION [None]
  - THROAT TIGHTNESS [None]
  - DIZZINESS [None]
  - DYSPEPSIA [None]
